FAERS Safety Report 4898720-8 (Version None)
Quarter: 2006Q1

REPORT INFORMATION
  Report Type: 
  Country: None (occurrence: None)
  Receive Date: 20060130
  Receipt Date: 20060110
  Transmission Date: 20060701
  Serious: Yes (Hospitalization)
  Sender: FDA-Public Use
  Company Number: 220940

PATIENT
  Age: 64 Year
  Sex: Female
  Weight: 55 kg

DRUGS (4)
  1. AVASTIN [Suspect]
     Indication: COLON CANCER
     Dosage: 419 MG, Q3M, INTRAVENOUS
     Route: 042
     Dates: start: 20050928
  2. OXALIPLATIN (OXALIPLATIN) [Suspect]
     Indication: COLON CANCER
     Dosage: 201 MG, Q3W, INTRAVENOUS
     Route: 042
     Dates: start: 20050928
  3. CAPECITABINE (CAPECITABINE) [Suspect]
     Indication: COLON CANCER
     Dosage: 1500 MG, BID, ORAL
     Route: 048
     Dates: start: 20050928
  4. ENALAPRIL MALEATE [Concomitant]

REACTIONS (2)
  - BRONCHOSPASM [None]
  - DIARRHOEA [None]
